FAERS Safety Report 20183901 (Version 1)
Quarter: 2021Q4

REPORT INFORMATION
  Report Type: Spontaneous
  Country: US (occurrence: US)
  Receive Date: 20211214
  Receipt Date: 20211214
  Transmission Date: 20220303
  Serious: Yes (Hospitalization, Other)
  Sender: FDA-Public Use
  Company Number: US-GILEAD-2021-0560879

PATIENT
  Sex: Female

DRUGS (1)
  1. VEKLURY [Suspect]
     Active Substance: REMDESIVIR
     Indication: Product used for unknown indication
     Route: 065

REACTIONS (16)
  - Bursitis [Recovering/Resolving]
  - Delirium [Unknown]
  - Diarrhoea [Unknown]
  - Vomiting [Unknown]
  - Exposure to radiation [Unknown]
  - Mechanical ventilation [Recovered/Resolved]
  - Aphasia [Recovering/Resolving]
  - Cough [Unknown]
  - Ageusia [Recovered/Resolved]
  - Vocal cord disorder [Unknown]
  - Anosmia [Recovered/Resolved]
  - Pain in extremity [Unknown]
  - Arthralgia [Unknown]
  - Back pain [Unknown]
  - Balance disorder [Not Recovered/Not Resolved]
  - Gait disturbance [Not Recovered/Not Resolved]
